FAERS Safety Report 8222745-8 (Version None)
Quarter: 2012Q1

REPORT INFORMATION
  Report Type: 
  Country: None (occurrence: None)
  Receive Date: 20120315
  Receipt Date: 20120306
  Transmission Date: 20120608
  Serious: No
  Sender: FDA-Public Use
  Company Number: 2012SP013125

PATIENT
  Age: 38 Year
  Sex: Female

DRUGS (1)
  1. SYCREST (ASENARPINE / 05706901 / ) [Suspect]
     Indication: PSYCHOTIC DISORDER
     Dosage: 15 MG;QD;SL
     Route: 060
     Dates: start: 20120201

REACTIONS (5)
  - OFF LABEL USE [None]
  - OEDEMA MOUTH [None]
  - PRURITUS GENERALISED [None]
  - RASH [None]
  - DRUG HYPERSENSITIVITY [None]
